FAERS Safety Report 12291344 (Version 2)
Quarter: 2016Q4

REPORT INFORMATION
  Report Type: Spontaneous
  Country: GB (occurrence: GB)
  Receive Date: 20160421
  Receipt Date: 20161021
  Transmission Date: 20170207
  Serious: Yes (Disabling, Other)
  Sender: FDA-Public Use
  Company Number: GB-MYLANLABS-2016M1015252

PATIENT

DRUGS (10)
  1. CAPSAICIN. [Concomitant]
     Active Substance: CAPSAICIN
     Indication: PAIN IN EXTREMITY
     Dosage: 2 DF, UNK
  2. TRAMADOL HYDROCHLORIDE. [Concomitant]
     Active Substance: TRAMADOL HYDROCHLORIDE
     Indication: NECK PAIN
     Dosage: UNK (50-100MG UP TO FOUR TIMES A DAY)
  3. LIDOCAINE. [Concomitant]
     Active Substance: LIDOCAINE
     Indication: NECK PAIN
     Dosage: UNK
     Route: 061
  4. INDAPAMIDE. [Concomitant]
     Active Substance: INDAPAMIDE
     Indication: MYOCARDIAL ISCHAEMIA
  5. DOXYCYCLINE. [Suspect]
     Active Substance: DOXYCYCLINE
     Indication: LOWER RESPIRATORY TRACT INFECTION
     Dosage: 200 MG, UNK
     Route: 048
     Dates: start: 20160329, end: 20160329
  6. PARACETAMOL [Concomitant]
     Active Substance: ACETAMINOPHEN
     Indication: NECK PAIN
     Dosage: 1 G, UNK (4-6 HOURLY)
  7. FULTIUM D3 [Concomitant]
     Indication: VITAMIN D DEFICIENCY
  8. DOXYCYCLINE. [Suspect]
     Active Substance: DOXYCYCLINE
     Dosage: 100 MG, UNK
     Route: 048
     Dates: start: 20160330, end: 20160331
  9. CLOPIDOGREL [Concomitant]
     Active Substance: CLOPIDOGREL BISULFATE
     Indication: MYOCARDIAL ISCHAEMIA
     Dosage: 75 MG, QD
  10. GABAPENTIN. [Concomitant]
     Active Substance: GABAPENTIN
     Dosage: 800 MG, TID

REACTIONS (3)
  - Rectal haemorrhage [Recovered/Resolved]
  - Faeces soft [Recovered/Resolved]
  - Abdominal pain upper [Recovered/Resolved]

NARRATIVE: CASE EVENT DATE: 20160331
